FAERS Safety Report 4334303-6 (Version None)
Quarter: 2004Q2

REPORT INFORMATION
  Report Type: 
  Country: None (occurrence: None)
  Receive Date: 20040405
  Receipt Date: 20040316
  Transmission Date: 20050107
  Serious: Yes (Hospitalization)
  Sender: FDA-Public Use
  Company Number: SO4-GER-01450-01

PATIENT
  Age: 22 Year
  Sex: Male

DRUGS (4)
  1. CITALOPRAM HYDROBROMIDE [Suspect]
     Indication: DEPRESSION
     Dosage: 200 MG ONCE PO
     Route: 048
     Dates: start: 20040313, end: 20040313
  2. CITALOPRAM HYDROBROMIDE [Suspect]
     Indication: FATIGUE
     Dosage: 200 MG ONCE PO
     Route: 048
     Dates: start: 20040313, end: 20040313
  3. CITALOPRAM HYDROBROMIDE [Suspect]
     Indication: DEPRESSION
     Dosage: 20 MG PRN PO
     Route: 048
  4. CITALOPRAM HYDROBROMIDE [Suspect]
     Indication: FATIGUE
     Dosage: 20 MG PRN PO
     Route: 048

REACTIONS (8)
  - DIZZINESS [None]
  - EUPHORIC MOOD [None]
  - FALL [None]
  - FATIGUE [None]
  - MYDRIASIS [None]
  - OVERDOSE [None]
  - PUPIL FIXED [None]
  - RESTLESSNESS [None]
